FAERS Safety Report 16782955 (Version 1)
Quarter: 2019Q3

REPORT INFORMATION
  Report Type: Spontaneous
  Country: US (occurrence: US)
  Receive Date: 20190906
  Receipt Date: 20190906
  Transmission Date: 20191005
  Serious: No
  Sender: FDA-Public Use
  Company Number: US-TEVA-2019-US-1103847

PATIENT
  Sex: Female

DRUGS (2)
  1. ENOXAPARIN SODIUM. [Suspect]
     Active Substance: ENOXAPARIN SODIUM
     Dosage: STRENGTH: 40 MG/0.4 ML
     Route: 065
  2. ENOXAPARIN SODIUM. [Suspect]
     Active Substance: ENOXAPARIN SODIUM
     Dosage: STRENGTH: 80 MG / 0.8 ML
     Route: 065

REACTIONS (6)
  - Asthenia [Unknown]
  - Fatigue [Unknown]
  - Eating disorder [Unknown]
  - Product use issue [Unknown]
  - Abdominal discomfort [Unknown]
  - Drug ineffective [Unknown]
